FAERS Safety Report 11970554 (Version 2)
Quarter: 2016Q1

REPORT INFORMATION
  Report Type: Report from Study
  Country: US (occurrence: US)
  Receive Date: 20160128
  Receipt Date: 20160202
  Transmission Date: 20160526
  Serious: No
  Sender: FDA-Public Use
  Company Number: US-ABBVIE-15K-163-1392461-00

PATIENT
  Age: 42 Year
  Sex: Female

DRUGS (2)
  1. HUMIRA [Suspect]
     Active Substance: ADALIMUMAB
     Indication: PSORIATIC ARTHROPATHY
     Route: 065
     Dates: start: 20150220
  2. ALEVE [Concomitant]
     Active Substance: NAPROXEN SODIUM
     Indication: CHEST DISCOMFORT

REACTIONS (4)
  - Sinusitis [Unknown]
  - Costochondritis [Unknown]
  - Gastrointestinal ulcer [Unknown]
  - Tinea infection [Unknown]

NARRATIVE: CASE EVENT DATE: 20150429
